FAERS Safety Report 4312765-8 (Version None)
Quarter: 2004Q1

REPORT INFORMATION
  Report Type: 
  Country: None (occurrence: None)
  Receive Date: 20040305
  Receipt Date: 20040303
  Transmission Date: 20041129
  Serious: Yes (Hospitalization)
  Sender: FDA-Public Use
  Company Number: 04-03-0320

PATIENT
  Age: 53 Year
  Sex: Male
  Weight: 73.0291 kg

DRUGS (5)
  1. CLOZAPINE [Suspect]
     Indication: SCHIZOPHRENIA, DISORGANISED TYPE
     Dosage: 800-300MG QHS ORAL
     Route: 048
     Dates: start: 19990501
  2. ARTANE [Suspect]
     Indication: EXTRAPYRAMIDAL DISORDER
     Dosage: 5MG TID
  3. LITHIUM CARBONATE [Concomitant]
  4. GEODON [Concomitant]
  5. PROZAC [Concomitant]

REACTIONS (3)
  - DEHYDRATION [None]
  - ILEUS [None]
  - WHITE BLOOD CELL COUNT INCREASED [None]
